FAERS Safety Report 4787436-4 (Version None)
Quarter: 2005Q4

REPORT INFORMATION
  Report Type: 
  Country: None (occurrence: None)
  Receive Date: 20051003
  Receipt Date: 20050922
  Transmission Date: 20060501
  Serious: Yes (Other)
  Sender: FDA-Public Use
  Company Number: 2005121181

PATIENT
  Age: 46 Year
  Sex: Male
  Weight: 113.3993 kg

DRUGS (8)
  1. XANAX [Suspect]
     Indication: ANXIETY
     Dosage: 6 MG (2 MG, 3 IN 1 D), ORAL
     Route: 048
     Dates: start: 20050701
  2. ZYPREXA [Suspect]
     Indication: DEPRESSION
  3. ALPRAZOLAM [Suspect]
     Indication: DEPRESSION
     Dosage: 2 MG (2 MG, 1 IN 1 D)
     Dates: start: 20050801
  4. KLONOPIN [Concomitant]
  5. METHOTREXATE [Concomitant]
  6. SOMA [Concomitant]
  7. LUNESTA [Concomitant]
  8. ZOLOFT [Concomitant]

REACTIONS (12)
  - DIABETES MELLITUS NON-INSULIN-DEPENDENT [None]
  - DRUG DEPENDENCE [None]
  - DRUG EFFECT DECREASED [None]
  - DRUG INEFFECTIVE [None]
  - INJURY [None]
  - INSOMNIA [None]
  - MUSCULOSKELETAL CHEST PAIN [None]
  - RIB FRACTURE [None]
  - SOMNOLENCE [None]
  - SPINAL OSTEOARTHRITIS [None]
  - UNEVALUABLE EVENT [None]
  - WEIGHT INCREASED [None]
